FAERS Safety Report 5871957-7 (Version None)
Quarter: 2008Q3

REPORT INFORMATION
  Report Type: 
  Country: None (occurrence: None)
  Receive Date: 20080905
  Receipt Date: 20080827
  Transmission Date: 20090109
  Serious: Yes (Other)
  Sender: FDA-Public Use
  Company Number: US-JNJFOC-20080806486

PATIENT
  Sex: Female
  Weight: 60.33 kg

DRUGS (5)
  1. DURAGESIC-100 [Suspect]
     Indication: PAIN
     Route: 062
  2. XANEX [Concomitant]
     Route: 048
  3. ZOLOFT [Concomitant]
     Route: 048
  4. RESTORIL [Concomitant]
     Route: 048
  5. DARVOCET [Concomitant]
     Route: 048

REACTIONS (6)
  - ABDOMINAL PAIN [None]
  - FALL [None]
  - HEAD INJURY [None]
  - OVARIAN CYST [None]
  - UTERINE ENLARGEMENT [None]
  - WITHDRAWAL SYNDROME [None]
